FAERS Safety Report 9781261 (Version 1)
Quarter: 2013Q4

REPORT INFORMATION
  Report Type: Spontaneous
  Country: US (occurrence: US)
  Receive Date: 20131224
  Receipt Date: 20131224
  Transmission Date: 20140711
  Serious: Yes (Other)
  Sender: FDA-Public Use
  Company Number: US-CELGENEUS-163-21660-13122663

PATIENT
  Sex: 0

DRUGS (4)
  1. ABRAXANE [Suspect]
     Indication: TRANSITIONAL CELL CARCINOMA
     Route: 041
  2. ABRAXANE [Suspect]
     Route: 041
  3. GEMCITABINE [Suspect]
     Indication: TRANSITIONAL CELL CARCINOMA
     Dosage: 800 MILLIGRAM/SQ. METER
     Route: 065
  4. CARBOPLATIN [Suspect]
     Indication: TRANSITIONAL CELL CARCINOMA
     Route: 065

REACTIONS (10)
  - Haemarthrosis [Unknown]
  - Lymphopenia [Unknown]
  - Fatigue [Unknown]
  - Mucosal inflammation [Unknown]
  - Arthritis [Unknown]
  - Diarrhoea [Unknown]
  - Vomiting [Unknown]
  - Aspartate aminotransferase abnormal [Unknown]
  - Alanine aminotransferase abnormal [Unknown]
  - Neuropathy peripheral [Unknown]
